FAERS Safety Report 18152681 (Version 2)
Quarter: 2020Q4

REPORT INFORMATION
  Report Type: Spontaneous
  Country: US (occurrence: US)
  Receive Date: 20200814
  Receipt Date: 20201110
  Transmission Date: 20210113
  Serious: No
  Sender: FDA-Public Use
  Company Number: US-PFIZER INC-2020313436

PATIENT
  Sex: Male

DRUGS (1)
  1. ADVIL [Suspect]
     Active Substance: IBUPROFEN
     Dosage: UNK

REACTIONS (6)
  - Rash [Unknown]
  - Pruritus [Unknown]
  - Scar [Unknown]
  - Hypersensitivity [Unknown]
  - Erythema [Unknown]
  - Blister [Unknown]
